FAERS Safety Report 9296605 (Version 2)
Quarter: 2013Q2

REPORT INFORMATION
  Report Type: Spontaneous
  Country: US (occurrence: None)
  Receive Date: 20130515
  Receipt Date: 20130522
  Transmission Date: 20140414
  Serious: Yes (Other)
  Sender: FDA-Public Use
  Company Number: ACO_35912_2013

PATIENT
  Age: 39 Year
  Sex: Male
  Weight: 83.9 kg

DRUGS (8)
  1. AMPYRA [Suspect]
     Indication: GAIT DISTURBANCE
     Route: 048
     Dates: start: 201101, end: 20120617
  2. TYSABRI (NATALIZUMAB) [Concomitant]
  3. CELEXA (CITALOPRAM HYDROBROMIDE) [Concomitant]
  4. MOTRIN (IBUPROFEN) [Concomitant]
  5. BACLOFEN (BACLOFEN) [Concomitant]
  6. GABAPENTIN (GABAPENTIN) [Concomitant]
  7. VITAMIN D (ERGOCALCIFEROL) [Concomitant]
  8. MODI8FINIL (MODI8FINIL) [Concomitant]

REACTIONS (3)
  - Convulsion [None]
  - Therapeutic response unexpected [None]
  - Energy increased [None]
